FAERS Safety Report 17043925 (Version 1)
Quarter: 2019Q4

REPORT INFORMATION
  Report Type: Spontaneous
  Country: US (occurrence: US)
  Receive Date: 20191018
  Receipt Date: 20191018
  Transmission Date: 20200122
  Serious: No
  Sender: FDA-Public Use
  Company Number: None

PATIENT
  Age: 34 Year
  Sex: Male

DRUGS (4)
  1. SUBOXONE [Suspect]
     Active Substance: BUPRENORPHINE HYDROCHLORIDE\NALOXONE HYDROCHLORIDE
     Indication: DRUG DEPENDENCE
     Dosage: ?          OTHER DOSE:2-0.5MG;?
     Route: 060
     Dates: start: 20151001, end: 201510
  2. SUBOXONE [Suspect]
     Active Substance: BUPRENORPHINE HYDROCHLORIDE\NALOXONE HYDROCHLORIDE
     Indication: DRUG DEPENDENCE
     Dosage: ?          OTHER DOSE:12-3MG ;?
     Route: 060
     Dates: start: 20151001, end: 201510
  3. SUBOXONE [Suspect]
     Active Substance: BUPRENORPHINE HYDROCHLORIDE\NALOXONE HYDROCHLORIDE
     Indication: POISONING
     Dosage: ?          OTHER DOSE:12-3MG ;?
     Route: 060
     Dates: start: 20151001, end: 201510
  4. SUBOXONE [Suspect]
     Active Substance: BUPRENORPHINE HYDROCHLORIDE\NALOXONE HYDROCHLORIDE
     Indication: POISONING
     Dosage: ?          OTHER DOSE:2-0.5MG;?
     Route: 060
     Dates: start: 20151001, end: 201510

REACTIONS (3)
  - Nausea [None]
  - Retching [None]
  - Vomiting [None]

NARRATIVE: CASE EVENT DATE: 20191015
